FAERS Safety Report 5065785-2 (Version None)
Quarter: 2006Q3

REPORT INFORMATION
  Report Type: 
  Country: None (occurrence: None)
  Receive Date: 20060719
  Receipt Date: 20051103
  Transmission Date: 20061208
  Serious: Yes (Life-Threatening, Hospitalization)
  Sender: FDA-Public Use
  Company Number: 05P-163-0316473-00

PATIENT
  Sex: Female
  Weight: 77 kg

DRUGS (22)
  1. NORVIR [Suspect]
     Indication: HIV INFECTION
     Dosage: 100 MG, 2 IN 1 D, PER ORAL
     Route: 048
     Dates: start: 20050202, end: 20051003
  2. SCH 417690 TABLETS [Suspect]
     Indication: HIV INFECTION
     Dates: start: 20050629, end: 20051003
  3. TENOFOVIR [Concomitant]
  4. LAMIVUDINE + ZIDOVUDINE [Concomitant]
  5. FOSAMPRENAVIR [Concomitant]
  6. FUZEON [Concomitant]
  7. PANTOPRAZOLE SODIUM [Concomitant]
  8. DOCUSATE SODIUM [Concomitant]
  9. AZITHROMYCIN [Concomitant]
  10. EPOETIN ALFA [Concomitant]
  11. ACETAMINOPHEN [Concomitant]
  12. CARVEDILOL [Concomitant]
  13. TRAZODONE HCL [Concomitant]
  14. ZOLPIDEM TARTRATE [Concomitant]
  15. ATOVAQUONE [Concomitant]
  16. KETOCONAZOLE [Concomitant]
  17. ONDANSETRON HCL [Concomitant]
  18. FAMCICLOVIR [Concomitant]
  19. FLUCONAZOLE [Concomitant]
  20. OXYCOCET [Concomitant]
  21. FENTANYL [Concomitant]
  22. VALACYCLOVIR HCL [Concomitant]

REACTIONS (3)
  - BLOOD AMYLASE INCREASED [None]
  - NAUSEA [None]
  - VOMITING [None]
